FAERS Safety Report 4532161-8 (Version None)
Quarter: 2004Q4

REPORT INFORMATION
  Report Type: 
  Country: None (occurrence: None)
  Receive Date: 20041220
  Receipt Date: 20041209
  Transmission Date: 20050328
  Serious: Yes (Other)
  Sender: FDA-Public Use
  Company Number: GB-JNJFOC-20041202846

PATIENT
  Age: 28 Year
  Sex: Male
  Weight: 60 kg

DRUGS (2)
  1. HALOPERIDOL [Suspect]
     Indication: PARANOIA
     Route: 049
  2. CODEINE PHOSPHATE [Concomitant]
     Indication: BACK PAIN
     Route: 049

REACTIONS (5)
  - DRY MOUTH [None]
  - DYSARTHRIA [None]
  - HEADACHE [None]
  - PHARMACEUTICAL PRODUCT COMPLAINT [None]
  - TREMOR [None]
